FAERS Safety Report 23030507 (Version 1)
Quarter: 2023Q4

REPORT INFORMATION
  Report Type: Spontaneous
  Country: FR (occurrence: FR)
  Receive Date: 20231005
  Receipt Date: 20231005
  Transmission Date: 20240109
  Serious: Yes (Hospitalization, Other)
  Sender: FDA-Public Use
  Company Number: None

PATIENT
  Age: 66 Year
  Sex: Female
  Weight: 63 kg

DRUGS (5)
  1. CAPECITABINE [Suspect]
     Active Substance: CAPECITABINE
     Indication: Rectal cancer
     Dosage: (EACH DAY OF RADIOTHERAPY IN 2 DAILY ADMINISTRATIONS)
     Route: 048
     Dates: start: 20230515, end: 20230622
  2. BROMAZEPAM [Suspect]
     Active Substance: BROMAZEPAM
     Dosage: IN THE EVENING
  3. MITOMYCIN C [Suspect]
     Active Substance: MITOMYCIN
     Dosage: IV BOLUS ON D1,
     Route: 042
  4. LEVOTHYROXINE [Suspect]
     Active Substance: LEVOTHYROXINE
     Indication: Hypothyroidism
     Dosage: DAILY DOSE: 75 MICROGRAM
  5. LEVOTHYROXINE [Suspect]
     Active Substance: LEVOTHYROXINE
     Indication: Hypothyroidism
     Dosage: 1/2/D

REACTIONS (2)
  - Ischaemic stroke [Recovering/Resolving]
  - Thrombocytopenia [Unknown]

NARRATIVE: CASE EVENT DATE: 20230708
